FAERS Safety Report 4642382-1 (Version None)
Quarter: 2005Q2

REPORT INFORMATION
  Report Type: 
  Country: None (occurrence: None)
  Receive Date: 20050422
  Receipt Date: 20050228
  Transmission Date: 20051028
  Serious: Yes (Other)
  Sender: FDA-Public Use
  Company Number: JP-GLAXOSMITHKLINE-B0373736A

PATIENT
  Age: 38 Year
  Sex: Female

DRUGS (2)
  1. IMIGRAN [Suspect]
     Indication: MIGRAINE
     Dosage: 50MG PER DAY
     Route: 048
     Dates: start: 20050221, end: 20050221
  2. SOLANTAL [Concomitant]
     Indication: MIGRAINE
     Dosage: 100MG PER DAY
     Route: 048
     Dates: start: 20050221, end: 20050221

REACTIONS (7)
  - CHEST PAIN [None]
  - EYE IRRITATION [None]
  - FEELING HOT [None]
  - MALAISE [None]
  - NASAL DISCOMFORT [None]
  - RESPIRATORY DISTRESS [None]
  - THROAT IRRITATION [None]
